FAERS Safety Report 4319870-0 (Version None)
Quarter: 2004Q1

REPORT INFORMATION
  Report Type: 
  Country: None (occurrence: None)
  Receive Date: 20040316
  Receipt Date: 20040304
  Transmission Date: 20041129
  Serious: Yes (Other)
  Sender: FDA-Public Use
  Company Number: US068067

PATIENT
  Age: 58 Year
  Sex: Female

DRUGS (6)
  1. ENBREL [Suspect]
     Indication: RHEUMATOID ARTHRITIS
     Dosage: 25 MG, 2 IN 1 WEEKS, SC
     Route: 058
     Dates: start: 19990101, end: 20040206
  2. MELOXICAM [Concomitant]
  3. PRAVASTATIN SODIUM [Concomitant]
  4. ERGOCALCIFEROL [Concomitant]
  5. ALENDRONATE SODIUM [Concomitant]
  6. METHOTREXATE [Concomitant]

REACTIONS (1)
  - FACIAL PALSY [None]
